FAERS Safety Report 6905662-2 (Version None)
Quarter: 2010Q3

REPORT INFORMATION
  Report Type: 
  Country: None (occurrence: None)
  Receive Date: 20100804
  Receipt Date: 20100728
  Transmission Date: 20110219
  Serious: Yes (Hospitalization)
  Sender: FDA-Public Use
  Company Number: US-SANOFI-AVENTIS-2010SA045176

PATIENT
  Age: 72 Year
  Sex: Male
  Weight: 86.5 kg

DRUGS (9)
  1. TAXOTERE [Suspect]
     Indication: PROSTATE CANCER
     Route: 041
     Dates: start: 20100312, end: 20100312
  2. TAXOTERE [Suspect]
     Route: 041
     Dates: start: 20100716, end: 20100716
  3. ELIGARD [Suspect]
     Indication: PROSTATE CANCER
     Route: 058
     Dates: start: 20100604, end: 20100604
  4. ELIGARD [Suspect]
     Dosage: EVERY 3 MONTH
     Route: 058
     Dates: start: 20100312, end: 20100312
  5. CASODEX [Suspect]
     Indication: PROSTATE CANCER
     Route: 048
     Dates: start: 20100312, end: 20100410
  6. CARDIAC THERAPY [Concomitant]
  7. VITAMIN TAB [Concomitant]
  8. ANTIHYPERTENSIVES [Concomitant]
  9. CHOLESTEROL- AND TRIGLYCERIDE REDUCERS [Concomitant]

REACTIONS (1)
  - FEBRILE NEUTROPENIA [None]
